FAERS Safety Report 19854810 (Version 1)
Quarter: 2021Q3

REPORT INFORMATION
  Report Type: Spontaneous
  Country: US (occurrence: US)
  Receive Date: 20210917
  Receipt Date: 20210917
  Transmission Date: 20211014
  Serious: Yes (Other)
  Sender: FDA-Public Use
  Company Number: None

PATIENT
  Age: 64 Year
  Sex: Female
  Weight: 50.4 kg

DRUGS (8)
  1. TUMERIC [Concomitant]
     Active Substance: HERBALS\TURMERIC
  2. ZOMETA [Suspect]
     Active Substance: ZOLEDRONIC ACID
     Indication: BONE LOSS
     Dosage: ?          OTHER ROUTE:IV INFUSION?
  3. ANASTROZOL [Concomitant]
     Active Substance: ANASTROZOLE
  4. THYROID [Concomitant]
     Active Substance: LEVOTHYROXINE\LIOTHYRONINE
  5. FISH OIL [Concomitant]
     Active Substance: FISH OIL
  6. MULTIVITAMIN [Concomitant]
     Active Substance: VITAMINS
  7. UBIQUINOL [Concomitant]
     Active Substance: UBIQUINOL
  8. ZINC. [Concomitant]
     Active Substance: ZINC

REACTIONS (4)
  - Bone pain [None]
  - Vomiting [None]
  - Pain [None]
  - Movement disorder [None]

NARRATIVE: CASE EVENT DATE: 20210902
